FAERS Safety Report 5289493-8 (Version None)
Quarter: 2007Q2

REPORT INFORMATION
  Report Type: 
  Country: None (occurrence: None)
  Receive Date: 20070406
  Receipt Date: 20070328
  Transmission Date: 20071010
  Serious: Yes (Other)
  Sender: FDA-Public Use
  Company Number: PHBS2007CH03740

PATIENT
  Age: 33 Year
  Sex: Male

DRUGS (2)
  1. CLOZAPINE [Suspect]
     Indication: SCHIZOPHRENIA, PARANOID TYPE
     Dates: start: 19890101
  2. LEVOMEPROMAZINE [Suspect]
     Dates: start: 20020101, end: 20040101

REACTIONS (5)
  - BLOOD PRESSURE INCREASED [None]
  - BLOOD TRIGLYCERIDES ABNORMAL [None]
  - HIGH DENSITY LIPOPROTEIN DECREASED [None]
  - METABOLIC SYNDROME [None]
  - WEIGHT INCREASED [None]
